FAERS Safety Report 6766843-4 (Version None)
Quarter: 2010Q2

REPORT INFORMATION
  Report Type: 
  Country: None (occurrence: None)
  Receive Date: 20100611
  Receipt Date: 20100601
  Transmission Date: 20101027
  Serious: Yes (Other)
  Sender: FDA-Public Use
  Company Number: US-CELGENEUS-163-21880-09042030

PATIENT

DRUGS (8)
  1. REVLIMID [Suspect]
     Indication: MULTIPLE MYELOMA
     Route: 048
  2. VELCADE [Suspect]
     Indication: MULTIPLE MYELOMA
     Route: 051
  3. VELCADE [Suspect]
     Dosage: FOLLOWING CYCLOPHOSPHAMIDE
  4. DEXAMETHASONE [Suspect]
     Indication: MULTIPLE MYELOMA
     Route: 048
  5. CYCLOPHOSPHAMIDE [Suspect]
     Indication: MULTIPLE MYELOMA
     Dosage: 100,200,300,400 OR 500 MG/M^2
     Route: 048
  6. ANTIBIOTICS [Concomitant]
     Indication: PROPHYLAXIS
     Route: 065
  7. ACYCLOVIR [Concomitant]
     Indication: DRUG USE FOR UNKNOWN INDICATION
     Route: 065
  8. TRANSFUSION [Concomitant]
     Indication: DRUG USE FOR UNKNOWN INDICATION
     Route: 051

REACTIONS (15)
  - ANGIOEDEMA [None]
  - AUTONOMIC NEUROPATHY [None]
  - CAECITIS [None]
  - CONSTIPATION [None]
  - FATIGUE [None]
  - FEBRILE NEUTROPENIA [None]
  - HERPES ZOSTER [None]
  - LEUKOPENIA [None]
  - LOBAR PNEUMONIA [None]
  - NAUSEA [None]
  - NEUROPATHY PERIPHERAL [None]
  - NEUTROPENIA [None]
  - PANCYTOPENIA [None]
  - PYREXIA [None]
  - THROMBOCYTOPENIA [None]
